FAERS Safety Report 8432718 (Version 3)
Quarter: 2012Q4

REPORT INFORMATION
  Report Type: 
  Country: US (occurrence: US)
  Receive Date: 20120229
  Receipt Date: 20121017
  Transmission Date: 20130627
  Serious: Yes (Other)
  Sender: FDA-Public Use
  Company Number: US-US-EMD SERONO, INC.-7114757

PATIENT
  Age: 50 None
  Sex: Female

DRUGS (2)
  1. REBIF [Suspect]
     Indication: PRODUCT USED FOR UNKNOWN INDICATION
     Route: 058
     Dates: start: 20120117, end: 201202
  2. REBIF [Suspect]
     Route: 058
     Dates: start: 201202

REACTIONS (3)
  - Ankle fracture [Unknown]
  - Fall [Unknown]
  - Mobility decreased [Not Recovered/Not Resolved]
